FAERS Safety Report 18979698 (Version 1)
Quarter: 2021Q1

REPORT INFORMATION
  Report Type: Spontaneous
  Country: US (occurrence: US)
  Receive Date: 20210308
  Receipt Date: 20210308
  Transmission Date: 20210420
  Serious: No
  Sender: FDA-Public Use
  Company Number: US-PFIZER INC-2021195280

PATIENT
  Age: 17 Year
  Sex: Female
  Weight: 45.36 kg

DRUGS (1)
  1. GENOTROPIN MQ [Suspect]
     Active Substance: SOMATROPIN
     Indication: TURNER^S SYNDROME
     Dosage: 2 MG, DAILY

REACTIONS (2)
  - Laboratory test abnormal [Unknown]
  - Intentional product misuse [Unknown]
